FAERS Safety Report 21839048 (Version 1)
Quarter: 2023Q1

REPORT INFORMATION
  Report Type: Spontaneous
  Country: US (occurrence: None)
  Receive Date: 20230108
  Receipt Date: 20230108
  Transmission Date: 20230418
  Serious: Yes (Other)
  Sender: FDA-Public Use
  Company Number: None

PATIENT
  Sex: Male

DRUGS (4)
  1. SIMPONI [Suspect]
     Active Substance: GOLIMUMAB
     Indication: Ankylosing spondylitis
     Dosage: OTHER QUANTITY : 50 MG/0.5ML ;?FREQUENCY : MONTHLY;?
     Route: 058
     Dates: end: 20190205
  2. SIMPONI [Suspect]
     Active Substance: GOLIMUMAB
     Dosage: OTHER QUANTITY : 1 SYRINGE;?FREQUENCY : MONTHLY;?
     Route: 058
  3. ATENOLOL [Concomitant]
     Active Substance: ATENOLOL
  4. PREDNISONE [Concomitant]
     Active Substance: PREDNISONE

REACTIONS (3)
  - Myocardial infarction [None]
  - Hypertension [None]
  - Therapy cessation [None]
